FAERS Safety Report 9121444 (Version 3)
Quarter: 2013Q1

REPORT INFORMATION
  Report Type: Spontaneous
  Country: US (occurrence: US)
  Receive Date: 20130225
  Receipt Date: 20130326
  Transmission Date: 20140127
  Serious: Yes (Hospitalization)
  Sender: FDA-Public Use
  Company Number: PHEH2013US004383

PATIENT
  Age: 8 Year
  Sex: Male

DRUGS (14)
  1. TOBI [Suspect]
     Indication: CYSTIC FIBROSIS
     Dosage: 300 MG, BID
  2. TOBI [Suspect]
     Dosage: 300 MG, PRN (SINCE LAST YEAR)
  3. PULMOZYME [Concomitant]
  4. ALBUTEROL [Concomitant]
  5. CIPRO [Concomitant]
  6. MULTI-VIT [Concomitant]
  7. FLOVENT [Concomitant]
  8. FLONASE [Concomitant]
  9. AZITHROMAX [Concomitant]
     Dosage: 3 DF, QW
  10. CAYSTON [Concomitant]
  11. CREON [Concomitant]
  12. ZYRTEC [Concomitant]
  13. BAYER CITRACAL VITAMIN D [Concomitant]
  14. ACAPELLA [Concomitant]
     Dosage: UNK UKN, UNK

REACTIONS (6)
  - Lung infection [Unknown]
  - Pulmonary mycosis [Unknown]
  - Pulmonary function test decreased [Unknown]
  - Infective pulmonary exacerbation of cystic fibrosis [Unknown]
  - Cough [Unknown]
  - Dyspnoea [Unknown]
